FAERS Safety Report 8817492 (Version 2)
Quarter: 2012Q4

REPORT INFORMATION
  Report Type: 
  Country: US (occurrence: US)
  Receive Date: 20121004
  Receipt Date: 20121106
  Transmission Date: 20130627
  Serious: Yes (Other)
  Sender: FDA-Public Use
  Company Number: US-BAXTER-2012BAX018280

PATIENT
  Age: 18 Year
  Sex: Male

DRUGS (7)
  1. GAMMAGARD LIQUID [Suspect]
     Indication: PRIMARY IMMUNODEFICIENCY SYNDROME
     Route: 042
     Dates: start: 20120915
  2. GAMMAGARD LIQUID [Suspect]
     Route: 042
     Dates: start: 201201
  3. NASONEX [Concomitant]
     Indication: DRUG USE FOR UNKNOWN INDICATION
  4. PREVENTIL [Concomitant]
     Indication: DRUG USE FOR UNKNOWN INDICATION
  5. ADVAIR [Concomitant]
     Indication: DRUG USE FOR UNKNOWN INDICATION
  6. MULTIVITAMIN [Concomitant]
     Indication: DRUG USE FOR UNKNOWN INDICATION
  7. SUMATRIPTAN [Concomitant]
     Indication: DRUG USE FOR UNKNOWN INDICATION

REACTIONS (3)
  - Influenza like illness [Not Recovered/Not Resolved]
  - Dehydration [Not Recovered/Not Resolved]
  - Sinusitis [Unknown]
